FAERS Safety Report 5098644-X (Version None)
Quarter: 2006Q3

REPORT INFORMATION
  Report Type: 
  Country: None (occurrence: None)
  Receive Date: 20060907
  Receipt Date: 20060823
  Transmission Date: 20061208
  Serious: Yes (Hospitalization)
  Sender: FDA-Public Use
  Company Number: US-AMGEN-US191133

PATIENT
  Sex: Female

DRUGS (2)
  1. ENBREL [Suspect]
     Indication: RHEUMATOID ARTHRITIS
     Route: 058
     Dates: start: 20000101
  2. IMURAN [Concomitant]
     Route: 048
     Dates: start: 19960101

REACTIONS (3)
  - FRACTURED SACRUM [None]
  - KIDNEY INFECTION [None]
  - SEPSIS [None]
